FAERS Safety Report 24065370 (Version 1)
Quarter: 2024Q3

REPORT INFORMATION
  Report Type: Spontaneous
  Country: CN (occurrence: CN)
  Receive Date: 20240709
  Receipt Date: 20240709
  Transmission Date: 20241017
  Serious: Yes (Other)
  Sender: BIO-THERA SOLUTIONS
  Company Number: CN-Bio-Thera Solutions, Ltd.-2158949

PATIENT
  Age: 68 Year
  Sex: Female

DRUGS (6)
  1. AVZIVI [Suspect]
     Active Substance: BEVACIZUMAB\BEVACIZUMAB-TNJN
     Indication: Ovarian cancer stage IV
     Route: 042
     Dates: start: 202303, end: 20230531
  2. PACLITAXEL [Suspect]
     Active Substance: PACLITAXEL
     Route: 042
     Dates: start: 20230214, end: 20230530
  3. ASPIRIN [Concomitant]
     Active Substance: ASPIRIN
     Route: 048
     Dates: start: 202211, end: 202302
  4. HYDROXYCHLOROQUINE SULFATE [Concomitant]
     Active Substance: HYDROXYCHLOROQUINE SULFATE
     Route: 048
     Dates: start: 202211, end: 202302
  5. PREDNISONE [Concomitant]
     Active Substance: PREDNISONE
     Route: 048
     Dates: start: 202211, end: 202302
  6. CISPLATIN [Suspect]
     Active Substance: CISPLATIN
     Route: 042
     Dates: start: 20230214, end: 20230530

REACTIONS (1)
  - Immune thrombocytopenia [Unknown]

NARRATIVE: CASE EVENT DATE: 20230601
